FAERS Safety Report 4353614-1 (Version None)
Quarter: 2004Q2

REPORT INFORMATION
  Report Type: 
  Country: None (occurrence: None)
  Receive Date: 20040430
  Receipt Date: 20040419
  Transmission Date: 20050107
  Serious: Yes (Death)
  Sender: FDA-Public Use
  Company Number: HQWYE217928JUL03

PATIENT

DRUGS (2)
  1. DIMETAPP [Suspect]
     Dosage: PRIOR TO 06-NOV-2000, TRANSPLACENTAL
     Route: 064
  2. ALKA-SELTZER PLUS (ACETYLSALICYLIC ACID/CHLORPHENAMINE MALEATE/PHENYLP [Suspect]
     Dosage: PRIOR TO 06-NOV-2000, TRANSPLACENTAL
     Route: 064

REACTIONS (1)
  - CEREBROVASCULAR ACCIDENT [None]
